FAERS Safety Report 9322876 (Version 1)
Quarter: 2013Q2

REPORT INFORMATION
  Report Type: Spontaneous
  Country: US (occurrence: US)
  Receive Date: 20130602
  Receipt Date: 20130602
  Transmission Date: 20140414
  Serious: Yes (Hospitalization)
  Sender: FDA-Public Use
  Company Number: US-MYLANLABS-2013S1011278

PATIENT
  Age: 43 Year
  Sex: Male

DRUGS (5)
  1. TACROLIMUS [Suspect]
     Indication: IMMUNOSUPPRESSANT DRUG THERAPY
     Dosage: THEN 12MG TWICE DAILY
     Route: 065
  2. TACROLIMUS [Suspect]
     Indication: IMMUNOSUPPRESSANT DRUG THERAPY
     Route: 065
  3. PREDNISONE [Concomitant]
     Indication: IMMUNOSUPPRESSANT DRUG THERAPY
     Dosage: 20 MG DAILY, THEN 5MG DAILY
     Route: 065
  4. PREDNISONE [Concomitant]
     Indication: IMMUNOSUPPRESSANT DRUG THERAPY
     Dosage: 5MG DAILY
     Route: 065
  5. MYCOPHENOLATE [Concomitant]
     Indication: IMMUNOSUPPRESSANT DRUG THERAPY
     Route: 065

REACTIONS (6)
  - Substance-induced psychotic disorder [Recovering/Resolving]
  - Headache [Unknown]
  - Visual impairment [Unknown]
  - Confusional state [Unknown]
  - Hypoaesthesia [Unknown]
  - Hypertension [Unknown]
